FAERS Safety Report 18779610 (Version 2)
Quarter: 2021Q1

REPORT INFORMATION
  Report Type: Spontaneous
  Country: US (occurrence: US)
  Receive Date: 20210125
  Receipt Date: 20210223
  Transmission Date: 20210419
  Serious: Yes (Hospitalization, Other)
  Sender: FDA-Public Use
  Company Number: US-LUPIN PHARMACEUTICALS INC.-2021-00057

PATIENT
  Sex: Female

DRUGS (2)
  1. LOSARTAN POTASSIUM TABLETS, 25 MG [Suspect]
     Active Substance: LOSARTAN POTASSIUM
     Dosage: UNK
     Route: 048
     Dates: start: 20200724
  2. LOSARTAN POTASSIUM TABLETS, 25 MG [Suspect]
     Active Substance: LOSARTAN POTASSIUM
     Indication: PRODUCT USED FOR UNKNOWN INDICATION
     Dosage: UNK
     Route: 048

REACTIONS (5)
  - Lip swelling [Unknown]
  - Anaphylactic shock [Unknown]
  - Near death experience [Unknown]
  - Dysphagia [Unknown]
  - Product quality issue [Unknown]

NARRATIVE: CASE EVENT DATE: 20200724
